FAERS Safety Report 11346624 (Version 1)
Quarter: 2015Q3

REPORT INFORMATION
  Report Type: Spontaneous
  Country: US (occurrence: US)
  Receive Date: 20150803
  Receipt Date: 20150803
  Transmission Date: 20151125
  Serious: No
  Sender: FDA-Public Use
  Company Number: US-ELI_LILLY_AND_COMPANY-US201011003166

PATIENT
  Age: 90 Year
  Sex: Female

DRUGS (14)
  1. LISINOPRIL. [Concomitant]
     Active Substance: LISINOPRIL
  2. SYNTHROID [Concomitant]
     Active Substance: LEVOTHYROXINE SODIUM
  3. WARFARIN [Concomitant]
     Active Substance: WARFARIN
  4. ZYPREXA [Suspect]
     Active Substance: OLANZAPINE
     Dosage: 5 MG, UNK
     Dates: start: 20101109
  5. DILTIAZEM [Concomitant]
     Active Substance: DILTIAZEM
  6. TRAZODIL [Concomitant]
  7. LASIX [Concomitant]
     Active Substance: FUROSEMIDE
  8. RESTASIS [Concomitant]
     Active Substance: CYCLOSPORINE
  9. BRIMONIDINE [Concomitant]
     Active Substance: BRIMONIDINE TARTRATE
     Indication: GLAUCOMA
  10. LIPITOR [Concomitant]
     Active Substance: ATORVASTATIN CALCIUM
  11. METOPROLOL [Concomitant]
     Active Substance: METOPROLOL
  12. ZYPREXA [Suspect]
     Active Substance: OLANZAPINE
     Indication: AGITATION
     Dosage: 5 MG, UNK
  13. ZYPREXA [Suspect]
     Active Substance: OLANZAPINE
     Dosage: 2.5 MG, UNK
  14. PREDNISOLONE. [Concomitant]
     Active Substance: PREDNISOLONE

REACTIONS (5)
  - Anxiety [Unknown]
  - Agitation [Unknown]
  - Off label use [Unknown]
  - Hallucination, visual [Unknown]
  - Abnormal behaviour [Unknown]
